FAERS Safety Report 6379525-8 (Version None)
Quarter: 2009Q3

REPORT INFORMATION
  Report Type: 
  Country: None (occurrence: None)
  Receive Date: 20090928
  Receipt Date: 20090923
  Transmission Date: 20100115
  Serious: Yes (Death)
  Sender: FDA-Public Use
  Company Number: US-JNJFOC-20090907688

PATIENT
  Sex: Male

DRUGS (8)
  1. DOXIL [Suspect]
     Dosage: CYCLE 4
     Route: 042
  2. DOXIL [Suspect]
     Dosage: CYCLE 3
     Route: 042
  3. DOXIL [Suspect]
     Dosage: CYCLE 2
     Route: 042
  4. DOXIL [Suspect]
     Indication: MULTIPLE MYELOMA
     Dosage: CYCLE 1
     Route: 042
  5. BORTEZOMIB [Suspect]
     Dosage: CYCLE 4
     Route: 042
  6. BORTEZOMIB [Suspect]
     Dosage: CYCLE 3
     Route: 042
  7. BORTEZOMIB [Suspect]
     Route: 042
  8. BORTEZOMIB [Suspect]
     Indication: MULTIPLE MYELOMA
     Dosage: CYCLE 1
     Route: 042

REACTIONS (3)
  - PNEUMONIA [None]
  - PULMONARY FIBROSIS [None]
  - SYNCOPE [None]
